FAERS Safety Report 6883562-4 (Version None)
Quarter: 2010Q3

REPORT INFORMATION
  Report Type: 
  Country: None (occurrence: None)
  Receive Date: 20100729
  Receipt Date: 20100719
  Transmission Date: 20110219
  Serious: Yes (Other)
  Sender: FDA-Public Use
  Company Number: US-PFIZER INC-2009266175

PATIENT
  Sex: Male
  Weight: 78.005 kg

DRUGS (13)
  1. VIAGRA [Suspect]
     Indication: ERECTILE DYSFUNCTION
     Dosage: 100 MG, AS NEEDED
     Route: 048
     Dates: start: 20030101
  2. VIAGRA [Suspect]
     Indication: SURGERY
     Dosage: 100 MG, AS NEEDED
     Route: 048
     Dates: start: 20040101
  3. TOVIAZ [Suspect]
     Indication: URINARY INCONTINENCE
     Dosage: 8 MG, DAILY
     Route: 048
     Dates: start: 20100701
  4. BENICAR [Concomitant]
     Dosage: UNK
  5. KLONOPIN [Concomitant]
     Dosage: 1 MG, UNK
  6. CYMBALTA [Concomitant]
     Dosage: 60 MG, UNK
  7. ZOLPIDEM [Concomitant]
     Dosage: UNK
  8. IBUPROFEN [Concomitant]
     Dosage: UNK
  9. ALEVE (CAPLET) [Concomitant]
     Dosage: UNK
  10. DARIFENACIN [Concomitant]
     Indication: URINARY INCONTINENCE
     Dosage: UNK
  11. WELLBUTRIN [Concomitant]
     Dosage: 100 MG, UNK
  12. SPIRIVA [Concomitant]
     Dosage: 18 MG, UNK
  13. TADALAFIL [Concomitant]
     Dosage: UNK

REACTIONS (4)
  - HYPERTENSION [None]
  - LOSS OF CONSCIOUSNESS [None]
  - PROSTATE CANCER [None]
  - URINARY INCONTINENCE [None]
